FAERS Safety Report 5648547-4 (Version None)
Quarter: 2008Q1

REPORT INFORMATION
  Report Type: 
  Country: None (occurrence: None)
  Receive Date: 20080229
  Receipt Date: 20080215
  Transmission Date: 20080703
  Serious: Yes (Hospitalization)
  Sender: FDA-Public Use
  Company Number: 2008S1002467

PATIENT
  Sex: Female

DRUGS (2)
  1. METFORMIN HCL [Suspect]
     Indication: TYPE 2 DIABETES MELLITUS
     Dosage: TABLET
  2. VOLTAREN /00372301 (DICLOFENAC) (CON.) [Concomitant]

REACTIONS (5)
  - DIABETES MELLITUS INADEQUATE CONTROL [None]
  - GASTROINTESTINAL INFECTION [None]
  - LACTIC ACIDOSIS [None]
  - RENAL FAILURE [None]
  - TREATMENT NONCOMPLIANCE [None]
